FAERS Safety Report 21478111 (Version 3)
Quarter: 2023Q1

REPORT INFORMATION
  Report Type: Spontaneous
  Country: US (occurrence: US)
  Receive Date: 20221019
  Receipt Date: 20230210
  Transmission Date: 20230418
  Serious: Yes (Hospitalization)
  Sender: FDA-Public Use
  Company Number: US-VERTEX PHARMACEUTICALS-2022-015323

PATIENT
  Age: 27 Year
  Sex: Male
  Weight: 82 kg

DRUGS (21)
  1. TRIKAFTA [Suspect]
     Active Substance: ELEXACAFTOR\IVACAFTOR\TEZACAFTOR
     Indication: Cystic fibrosis
     Dosage: 2 ORANGE TABS IN THE MORNING AND 1 BLUE TAB IN THE EVENING
     Route: 048
     Dates: start: 20191210
  2. RANITIDINE [Concomitant]
     Active Substance: RANITIDINE
  3. LACTOBACILLUS ACIDOPHILUS [Concomitant]
     Active Substance: LACTOBACILLUS ACIDOPHILUS
  4. ZINC [Concomitant]
     Active Substance: ZINC
     Dosage: ZINC-15 66 MG
  5. MAGNESIUM [Concomitant]
     Active Substance: MAGNESIUM
  6. LORATADINE [Concomitant]
     Active Substance: LORATADINE
  7. CALCIUM\VITAMIN D [Concomitant]
     Active Substance: CALCIUM\VITAMIN D
     Dosage: 500MG-1000 TAB
  8. CREON [Concomitant]
     Active Substance: PANCRELIPASE AMYLASE\PANCRELIPASE LIPASE\PANCRELIPASE PROTEASE
     Dosage: 6K-19K-30K CAPSULE DR
  9. ADVIL [Concomitant]
     Active Substance: IBUPROFEN
     Dosage: 2-30-200MG TABLET
  10. PULMOZYME [Concomitant]
     Active Substance: DORNASE ALFA
  11. TOBI PODHALER [Concomitant]
     Active Substance: TOBRAMYCIN
  12. SYMBICORT [Concomitant]
     Active Substance: BUDESONIDE\FORMOTEROL FUMARATE DIHYDRATE
     Dosage: 160-4.5MCG HFA AER AD
  13. MIRTAZAPINE [Concomitant]
     Active Substance: MIRTAZAPINE
  14. BACLOFEN [Concomitant]
     Active Substance: BACLOFEN
     Dosage: 100% POW
  15. AMLODIPINE BESYLATE [Concomitant]
     Active Substance: AMLODIPINE BESYLATE
     Dosage: 100% POWDER
  16. GABAPENTIN [Concomitant]
     Active Substance: GABAPENTIN
     Dosage: 100% POWDER
  17. PAXIL [Concomitant]
     Active Substance: PAROXETINE HYDROCHLORIDE
  18. PANTOPRAZOLE SODIUM [Concomitant]
     Active Substance: PANTOPRAZOLE SODIUM
  19. ALBUTEROL SULFATE [Concomitant]
     Active Substance: ALBUTEROL SULFATE
  20. PANCREAZE [Concomitant]
     Active Substance: PANCRELIPASE AMYLASE\PANCRELIPASE LIPASE\PANCRELIPASE PROTEASE
     Dosage: 10.5-35.5K CAP DR
  21. TOBRAMYCIN [Concomitant]
     Active Substance: TOBRAMYCIN
     Dosage: 300 MG/5ML AMPUL-NEB
     Route: 055

REACTIONS (1)
  - Influenza [Recovered/Resolved]

NARRATIVE: CASE EVENT DATE: 20221006
